FAERS Safety Report 15187206 (Version 2)
Quarter: 2019Q1

REPORT INFORMATION
  Report Type: Report from Study
  Country: US (occurrence: US)
  Receive Date: 20180723
  Receipt Date: 20190130
  Transmission Date: 20190417
  Serious: No
  Sender: FDA-Public Use
  Company Number: US-EXELIXIS-CABO-18011953

PATIENT
  Age: 65 Year
  Sex: Male

DRUGS (1)
  1. CABOMETYX [Suspect]
     Active Substance: CABOZANTINIB S-MALATE
     Indication: RETROPERITONEAL CANCER
     Dosage: 20 MG, QD
     Route: 048
     Dates: start: 201712

REACTIONS (8)
  - Sinus disorder [Not Recovered/Not Resolved]
  - Nausea [Recovered/Resolved]
  - Blood magnesium decreased [Unknown]
  - Myalgia [Unknown]
  - Muscle spasms [Unknown]
  - Off label use [Unknown]
  - Back pain [Recovered/Resolved]
  - Diarrhoea [Not Recovered/Not Resolved]

NARRATIVE: CASE EVENT DATE: 201712
